FAERS Safety Report 5400559-1 (Version None)
Quarter: 2007Q3

REPORT INFORMATION
  Report Type: 
  Country: None (occurrence: None)
  Receive Date: 20070725
  Receipt Date: 20070717
  Transmission Date: 20080115
  Serious: Yes (Other)
  Sender: FDA-Public Use
  Company Number: 2007SP014326

PATIENT
  Age: 43 Year
  Sex: Female

DRUGS (1)
  1. PEGATRON             (PEGYLATED INTERFERON ALFA-2B W/RIBAVIRIN) [Suspect]
     Indication: HEPATITIS C
     Dosage: SC; PO
     Route: 058

REACTIONS (7)
  - AMENORRHOEA [None]
  - ANOREXIA [None]
  - LETHARGY [None]
  - MASS [None]
  - NAUSEA [None]
  - RECTAL HAEMORRHAGE [None]
  - VAGINAL DISORDER [None]
